FAERS Safety Report 21727344 (Version 2)
Quarter: 2022Q4

REPORT INFORMATION
  Report Type: Spontaneous
  Country: US (occurrence: US)
  Receive Date: 20221214
  Receipt Date: 20221216
  Transmission Date: 20230113
  Serious: Yes (Other)
  Sender: FDA-Public Use
  Company Number: US-SANOFI-01398965

PATIENT
  Sex: Male

DRUGS (3)
  1. MULTAQ [Suspect]
     Active Substance: DRONEDARONE
     Indication: Atrial fibrillation
     Dosage: 400 MG, Q12H
     Route: 065
  2. MULTAQ [Suspect]
     Active Substance: DRONEDARONE
     Indication: Cardiac flutter
  3. LOPERAMIDE HYDROCHLORIDE [Suspect]
     Active Substance: LOPERAMIDE HYDROCHLORIDE
     Indication: Diarrhoea
     Dosage: UNK
     Route: 065

REACTIONS (9)
  - Cataract [Unknown]
  - Neuralgia [Unknown]
  - Increased appetite [Unknown]
  - Hunger [Unknown]
  - Weight increased [Unknown]
  - Condition aggravated [Unknown]
  - Food poisoning [Unknown]
  - Faeces discoloured [Unknown]
  - Diarrhoea [Unknown]
